FAERS Safety Report 7771169-6 (Version None)
Quarter: 2011Q3

REPORT INFORMATION
  Report Type: 
  Country: None (occurrence: None)
  Receive Date: 20110922
  Receipt Date: 20110315
  Transmission Date: 20111222
  Serious: No
  Sender: FDA-Public Use
  Company Number: US-ASTRAZENECA-2011SE14580

PATIENT
  Age: 47 Year
  Sex: Female
  Weight: 64.4 kg

DRUGS (5)
  1. TRAZODONE HCL [Concomitant]
     Route: 048
     Dates: start: 20100801
  2. SEROQUEL [Suspect]
     Route: 048
     Dates: start: 20101101
  3. SEROQUEL [Suspect]
     Indication: DEPRESSION
     Route: 048
     Dates: start: 20101101
  4. CELEXA [Concomitant]
     Route: 048
     Dates: start: 20100801
  5. CLONAZEPAM [Concomitant]
     Route: 048
     Dates: start: 20100801

REACTIONS (4)
  - FATIGUE [None]
  - NO ADVERSE EVENT [None]
  - THERAPEUTIC RESPONSE UNEXPECTED [None]
  - WEIGHT INCREASED [None]
